FAERS Safety Report 4802270-4 (Version None)
Quarter: 2005Q4

REPORT INFORMATION
  Report Type: 
  Country: None (occurrence: None)
  Receive Date: 20051012
  Receipt Date: 20050929
  Transmission Date: 20060501
  Serious: Yes (Other)
  Sender: FDA-Public Use
  Company Number: 2005135446

PATIENT
  Sex: Female
  Weight: 47.6277 kg

DRUGS (3)
  1. CELEBREX [Suspect]
     Indication: ARTHRITIS
     Dates: start: 20010101
  2. CELEBREX [Suspect]
     Indication: PAIN
     Dates: start: 20010101
  3. PAMINE/CAN/ (HYOSCINE METHOBROMIDE) [Concomitant]

REACTIONS (5)
  - GASTROOESOPHAGEAL REFLUX DISEASE [None]
  - MENOPAUSE [None]
  - OESOPHAGEAL DISORDER [None]
  - OESOPHAGEAL PERFORATION [None]
  - WEIGHT INCREASED [None]
